FAERS Safety Report 9119868 (Version 1)
Quarter: 2013Q1

REPORT INFORMATION
  Report Type: Spontaneous
  Country: US (occurrence: US)
  Receive Date: 20130226
  Receipt Date: 20130226
  Transmission Date: 20140127
  Serious: No
  Sender: FDA-Public Use
  Company Number: US-PFIZER INC-2013066041

PATIENT
  Age: 55 Year
  Sex: Female
  Weight: 80 kg

DRUGS (2)
  1. CALAN SR [Suspect]
     Indication: SUPRAVENTRICULAR TACHYCARDIA
     Dosage: 240 MG, 2X/DAY
     Dates: start: 20130213, end: 201302
  2. HYDROCODONE W/ACETAMINOPHEN [Concomitant]
     Indication: ARTHRITIS
     Dosage: 10/325 MG EVERY 6 HOURS

REACTIONS (1)
  - Heart rate increased [Recovered/Resolved]
